FAERS Safety Report 25012587 (Version 1)
Quarter: 2025Q1

REPORT INFORMATION
  Report Type: Spontaneous
  Country: US (occurrence: None)
  Receive Date: 20250226
  Receipt Date: 20250226
  Transmission Date: 20250408
  Serious: No
  Sender: AXSOME THERAPEUTICS, INC.
  Company Number: US-Axsome Therapeutics, Inc.-AXS202411-001939

PATIENT
  Age: 27 Year
  Sex: Female

DRUGS (3)
  1. AUVELITY [Suspect]
     Active Substance: BUPROPION HYDROCHLORIDE\DEXTROMETHORPHAN HYDROBROMIDE
     Indication: Major depression
     Route: 065
     Dates: start: 20241018, end: 20241020
  2. AUVELITY [Suspect]
     Active Substance: BUPROPION HYDROCHLORIDE\DEXTROMETHORPHAN HYDROBROMIDE
     Route: 065
     Dates: start: 20241021, end: 2024
  3. AUVELITY [Suspect]
     Active Substance: BUPROPION HYDROCHLORIDE\DEXTROMETHORPHAN HYDROBROMIDE
     Route: 065
     Dates: start: 20241127

REACTIONS (10)
  - Dizziness [Not Recovered/Not Resolved]
  - Illness [Recovering/Resolving]
  - Influenza like illness [Recovering/Resolving]
  - Irritability [Recovering/Resolving]
  - Headache [Recovering/Resolving]
  - Depressive symptom [Recovering/Resolving]
  - Intentional dose omission [Unknown]
  - Product dispensing issue [Unknown]
  - Product availability issue [Unknown]
  - Circumstance or information capable of leading to medication error [Unknown]
